FAERS Safety Report 11822025 (Version 1)
Quarter: 2015Q4

REPORT INFORMATION
  Report Type: Spontaneous
  Country: US (occurrence: US)
  Receive Date: 20151210
  Receipt Date: 20151210
  Transmission Date: 20160305
  Serious: No
  Sender: FDA-Public Use
  Company Number: US-JNJFOC-20150610799

PATIENT
  Age: 62 Year
  Sex: Male

DRUGS (2)
  1. IMBRUVICA [Suspect]
     Active Substance: IBRUTINIB
     Indication: CHRONIC LYMPHOCYTIC LEUKAEMIA (IN REMISSION)
     Route: 048
     Dates: start: 20150408
  2. NAPROXEN SODIUM. [Concomitant]
     Active Substance: NAPROXEN SODIUM

REACTIONS (4)
  - Myalgia [Unknown]
  - Dizziness [Recovered/Resolved]
  - Arthralgia [Not Recovered/Not Resolved]
  - Tendon pain [Recovered/Resolved]

NARRATIVE: CASE EVENT DATE: 2015
